FAERS Safety Report 6478683-4 (Version None)
Quarter: 2009Q4

REPORT INFORMATION
  Report Type: 
  Country: None (occurrence: None)
  Receive Date: 20091207
  Receipt Date: 20091207
  Transmission Date: 20100525
  Serious: Yes (Hospitalization)
  Sender: FDA-Public Use
  Company Number: US-PFIZER INC-2009269332

PATIENT
  Sex: Male

DRUGS (1)
  1. PHENYTOIN SODIUM AND PHENYTOIN [Suspect]

REACTIONS (1)
  - DRUG INTOLERANCE [None]
